FAERS Safety Report 14615193 (Version 8)
Quarter: 2019Q1

REPORT INFORMATION
  Report Type: Report from Study
  Country: US (occurrence: US)
  Receive Date: 20180308
  Receipt Date: 20190313
  Transmission Date: 20190417
  Serious: Yes (Hospitalization)
  Sender: FDA-Public Use
  Company Number: US-ACTELION-A-NJ2018-168533

PATIENT
  Age: 75 Year
  Sex: Female

DRUGS (11)
  1. ATORVASTATIN [Concomitant]
     Active Substance: ATORVASTATIN
  2. LISINOPRIL. [Concomitant]
     Active Substance: LISINOPRIL
  3. CARVEDILOL. [Concomitant]
     Active Substance: CARVEDILOL
  4. PRAMIPEXOLE. [Concomitant]
     Active Substance: PRAMIPEXOLE
  5. OPSUMIT [Suspect]
     Active Substance: MACITENTAN
     Indication: PULMONARY ARTERIAL HYPERTENSION
     Dosage: 10 MG, QD
     Route: 048
     Dates: start: 20160727, end: 20190116
  6. FUROSEMIDE. [Concomitant]
     Active Substance: FUROSEMIDE
  7. ELIQUIS [Concomitant]
     Active Substance: APIXABAN
  8. PROAIR HFA [Concomitant]
     Active Substance: ALBUTEROL SULFATE
  9. CARTIA [Concomitant]
  10. PROAIR HFA [Concomitant]
     Active Substance: ALBUTEROL SULFATE
  11. PANTOPRAZOLE [Concomitant]
     Active Substance: PANTOPRAZOLE

REACTIONS (14)
  - Heart rate irregular [Recovered/Resolved]
  - Dehydration [Unknown]
  - Hypophagia [Unknown]
  - Cardiac pacemaker insertion [Unknown]
  - Vomiting [Unknown]
  - Dyspnoea exertional [Unknown]
  - Supraventricular tachycardia [Recovered/Resolved]
  - Product dose omission [Unknown]
  - Fluid retention [Not Recovered/Not Resolved]
  - Catheterisation cardiac [Unknown]
  - Renal failure [Recovered/Resolved]
  - Diarrhoea [Unknown]
  - Anaemia [Not Recovered/Not Resolved]
  - Drug intolerance [Not Recovered/Not Resolved]

NARRATIVE: CASE EVENT DATE: 20180218
